FAERS Safety Report 7290308-7 (Version None)
Quarter: 2011Q1

REPORT INFORMATION
  Report Type: 
  Country: None (occurrence: None)
  Receive Date: 20110209
  Receipt Date: 20110209
  Transmission Date: 20110831
  Serious: Yes (Other)
  Sender: FDA-Public Use
  Company Number: None

PATIENT
  Age: 70 Year
  Sex: Female
  Weight: 60.782 kg

DRUGS (1)
  1. PROPOXYPHENE NAPSYLATE W/ ACETAMINOPHEN [Suspect]
     Indication: ARTHRALGIA
     Dosage: 1 OR 2 EVERY 6-8 HRS AS NEEDED MOUTH (OFF + ON 3+ YEARS)
     Route: 048
     Dates: end: 20101101

REACTIONS (2)
  - PALPITATIONS [None]
  - HEART RATE INCREASED [None]
